FAERS Safety Report 20225005 (Version 2)
Quarter: 2022Q1

REPORT INFORMATION
  Report Type: Spontaneous
  Country: US (occurrence: US)
  Receive Date: 20211223
  Receipt Date: 20220127
  Transmission Date: 20220423
  Serious: No
  Sender: FDA-Public Use
  Company Number: US-ELI_LILLY_AND_COMPANY-US202112010867

PATIENT
  Sex: Female
  Weight: 102.04 kg

DRUGS (4)
  1. ADCIRCA [Suspect]
     Active Substance: TADALAFIL
     Indication: Pulmonary arterial hypertension
     Dosage: UNK UNK, UNKNOWN
     Route: 065
  2. REMODULIN [Suspect]
     Active Substance: TREPROSTINIL
     Indication: Pulmonary arterial hypertension
     Dosage: 48 NG/KG/MIN, CONTINUOUS
     Route: 058
     Dates: start: 20160225
  3. REMODULIN [Suspect]
     Active Substance: TREPROSTINIL
     Dosage: 48 NG/KG/MIN, CONTINUOUS
     Route: 058
     Dates: start: 20160225
  4. OPSUMIT [Concomitant]
     Active Substance: MACITENTAN
     Indication: Pulmonary arterial hypertension
     Dosage: UNK UNK, UNKNOWN
     Route: 065

REACTIONS (8)
  - Erythema [Unknown]
  - Neuropathy peripheral [Unknown]
  - Malaise [Unknown]
  - Nausea [Unknown]
  - Flushing [Unknown]
  - Dizziness [Unknown]
  - Vomiting [Unknown]
  - Dyspnoea [Not Recovered/Not Resolved]
